FAERS Safety Report 17008323 (Version 1)
Quarter: 2019Q4

REPORT INFORMATION
  Report Type: Spontaneous
  Country: US (occurrence: US)
  Receive Date: 20190928
  Receipt Date: 20190928
  Transmission Date: 20200122
  Serious: Yes (Hospitalization)
  Sender: FDA-Public Use
  Company Number: None

PATIENT
  Sex: Female

DRUGS (11)
  1. LYRICA [Concomitant]
     Active Substance: PREGABALIN
  2. DICYCLOMINE [Concomitant]
     Active Substance: DICYCLOMINE HYDROCHLORIDE
  3. STELARA [Suspect]
     Active Substance: USTEKINUMAB
     Indication: CROHN^S DISEASE
     Route: 042
  4. PREGABALIN. [Concomitant]
     Active Substance: PREGABALIN
  5. OXYCODONE [Concomitant]
     Active Substance: OXYCODONE
  6. BELSOMRA [Concomitant]
     Active Substance: SUVOREXANT
  7. OMEPRAZOLE. [Concomitant]
     Active Substance: OMEPRAZOLE
  8. PREDNISON [Concomitant]
     Active Substance: PREDNISONE
  9. TOPIRAMATE. [Concomitant]
     Active Substance: TOPIRAMATE
  10. ELETRIPTAN. [Concomitant]
     Active Substance: ELETRIPTAN
  11. ONDANSETRON [Concomitant]
     Active Substance: ONDANSETRON

REACTIONS (1)
  - Hospitalisation [None]
